FAERS Safety Report 17106829 (Version 1)
Quarter: 2019Q4

REPORT INFORMATION
  Report Type: Spontaneous
  Country: FR (occurrence: FR)
  Receive Date: 20191203
  Receipt Date: 20191203
  Transmission Date: 20200122
  Serious: Yes (Other)
  Sender: FDA-Public Use
  Company Number: FR-MYLANLABS-2019M1116459

PATIENT
  Age: 3 Year
  Sex: Male
  Weight: 15 kg

DRUGS (1)
  1. DESLORATADINE MYLAN 0,5 MG/ML, SOLUTION BUVABLE [Suspect]
     Active Substance: DESLORATADINE
     Indication: HYPERSENSITIVITY
     Dosage: 2.5 MILLILITER, QD
     Route: 048
     Dates: start: 20181001, end: 20190511

REACTIONS (3)
  - Sleep terror [Recovered/Resolved]
  - Abdominal pain [Recovered/Resolved]
  - Aggression [Recovered/Resolved]

NARRATIVE: CASE EVENT DATE: 201812
